FAERS Safety Report 8057090 (Version 5)
Quarter: 2014Q3

REPORT INFORMATION
  Report Type: Spontaneous
  Country: US (occurrence: US)
  Receive Date: 20110727
  Receipt Date: 20140718
  Transmission Date: 20150326
  Serious: Yes (Hospitalization)
  Sender: FDA-Public Use
  Company Number: US-GLAXOSMITHKLINE-A0905957A

PATIENT
  Sex: Female
  Weight: 80.9 kg

DRUGS (1)
  1. AVANDIA [Suspect]
     Active Substance: ROSIGLITAZONE MALEATE
     Indication: DIABETES MELLITUS
     Dosage: 8MG PER DAY
     Route: 048
     Dates: start: 2002, end: 200610

REACTIONS (12)
  - Coronary angioplasty [Unknown]
  - Dyspnoea [Unknown]
  - Coronary arterial stent insertion [Unknown]
  - Myocardial infarction [Not Recovered/Not Resolved]
  - Amnesia [Unknown]
  - Pain [Unknown]
  - Catheterisation cardiac [Unknown]
  - Fatigue [Unknown]
  - Sensory loss [Unknown]
  - Chest pain [Unknown]
  - Coronary artery disease [Unknown]
  - Stent placement [Unknown]
